FAERS Safety Report 11330567 (Version 1)
Quarter: 2015Q3

REPORT INFORMATION
  Report Type: Spontaneous
  Country: US (occurrence: US)
  Receive Date: 20150803
  Receipt Date: 20150803
  Transmission Date: 20151125
  Serious: No
  Sender: FDA-Public Use
  Company Number: US-TAKEDA-2015TUS001636

PATIENT
  Age: 53 Year
  Sex: Female

DRUGS (1)
  1. COLCRYS [Suspect]
     Active Substance: COLCHICINE
     Indication: ARTERITIS
     Dosage: UNK
     Route: 065

REACTIONS (2)
  - Product use issue [Recovered/Resolved]
  - No adverse event [Unknown]
